FAERS Safety Report 12042787 (Version 1)
Quarter: 2016Q1

REPORT INFORMATION
  Report Type: Other
  Country: US (occurrence: US)
  Receive Date: 20160208
  Receipt Date: 20160208
  Transmission Date: 20160526
  Serious: Yes (Hospitalization, Other)
  Sender: FDA-Public Use
  Company Number: US-ANTARES PHARMA, INC.-2015-LIT-ME-0177

PATIENT
  Age: 6 Year
  Sex: Male

DRUGS (1)
  1. METHOTREXATE [Suspect]
     Active Substance: METHOTREXATE
     Indication: UVEITIS
     Dosage: 25 MG, QWK
     Route: 058

REACTIONS (10)
  - Pyrexia [None]
  - Aspartate aminotransferase increased [None]
  - Blood lactate dehydrogenase increased [None]
  - Diarrhoea [None]
  - Alanine aminotransferase increased [None]
  - Off label use [None]
  - Thrombocytopenia [None]
  - Vomiting [None]
  - Serum ferritin increased [None]
  - Anaemia [None]
